FAERS Safety Report 8827336 (Version 1)
Quarter: 2012Q4

REPORT INFORMATION
  Report Type: 
  Country: US (occurrence: US)
  Receive Date: 20121008
  Receipt Date: 20121008
  Transmission Date: 20130627
  Serious: No
  Sender: FDA-Public Use
  Company Number: US-009507513-1209USA010592

PATIENT
  Sex: Female

DRUGS (5)
  1. VICTRELIS [Suspect]
     Indication: HEPATITIS C
     Dosage: 4 DF, q8h
     Route: 048
     Dates: start: 20120417
  2. RIBAPAK [Suspect]
  3. PEGASYS [Suspect]
  4. METFORMIN [Concomitant]
  5. CHLORTHALIDONE [Concomitant]

REACTIONS (1)
  - Drug ineffective [Unknown]
